FAERS Safety Report 25705856 (Version 1)
Quarter: 2025Q3

REPORT INFORMATION
  Report Type: Spontaneous
  Country: EU (occurrence: EU)
  Receive Date: 20250820
  Receipt Date: 20250820
  Transmission Date: 20251021
  Serious: Yes (Hospitalization, Other)
  Sender: GILEAD
  Company Number: None

PATIENT
  Age: 62 Year
  Sex: Female

DRUGS (1)
  1. YESCARTA [Suspect]
     Active Substance: AXICABTAGENE CILOLEUCEL
     Indication: Diffuse large B-cell lymphoma refractory
     Route: 042
     Dates: start: 20250528, end: 20250528

REACTIONS (3)
  - Necrotising myositis [Recovering/Resolving]
  - Septic shock [Recovered/Resolved]
  - Klebsiella bacteraemia [Recovered/Resolved]

NARRATIVE: CASE EVENT DATE: 20250702
